FAERS Safety Report 11578427 (Version 4)
Quarter: 2016Q4

REPORT INFORMATION
  Report Type: Report from Study
  Country: GT (occurrence: GT)
  Receive Date: 20150930
  Receipt Date: 20161223
  Transmission Date: 20170206
  Serious: Yes (Death, Hospitalization, Other)
  Sender: FDA-Public Use
  Company Number: PHHY2015GT114763

PATIENT
  Age: 51 Year
  Sex: Female

DRUGS (1)
  1. GILENYA [Suspect]
     Active Substance: FINGOLIMOD HYDROCHLORIDE
     Indication: MULTIPLE SCLEROSIS
     Dosage: 0.5 MG, UNK
     Route: 065
     Dates: start: 20150810

REACTIONS (6)
  - Septic shock [Fatal]
  - Intestinal perforation [Unknown]
  - Multiple sclerosis relapse [Unknown]
  - Malaise [Unknown]
  - Fascial rupture [Unknown]
  - Appendicitis [Unknown]
